FAERS Safety Report 10189956 (Version 2)
Quarter: 2014Q2

REPORT INFORMATION
  Report Type: Spontaneous
  Country: JP (occurrence: JP)
  Receive Date: 20140522
  Receipt Date: 20140522
  Transmission Date: 20141212
  Serious: Yes (Hospitalization)
  Sender: FDA-Public Use
  Company Number: JP-AMGEN-JPNSP2013077431

PATIENT
  Age: 75 Year
  Sex: Female
  Weight: 50 kg

DRUGS (5)
  1. GRAN [Suspect]
     Indication: IDIOPATHIC NEUTROPENIA
     Dosage: 150 MUG, 1X/2WEEKS
     Route: 058
     Dates: start: 20121022
  2. GRAN [Suspect]
     Dosage: 150 MUG, QD
     Route: 058
  3. KAYEXALATE [Concomitant]
     Indication: HYPERKALAEMIA
     Dosage: 2 DF, TID
     Route: 048
     Dates: start: 20121212
  4. MAGMITT [Concomitant]
     Indication: CONSTIPATION
     Dosage: 2 DF, TID
     Route: 048
  5. BAYASPIRIN [Concomitant]
     Indication: CEREBRAL INFARCTION
     Dosage: 1 DF, QD
     Route: 048

REACTIONS (1)
  - Neutrophil count decreased [Recovered/Resolved]
